FAERS Safety Report 16690600 (Version 6)
Quarter: 2022Q2

REPORT INFORMATION
  Report Type: Report from Study
  Country: JP (occurrence: JP)
  Receive Date: 20190810
  Receipt Date: 20220628
  Transmission Date: 20220720
  Serious: Yes (Other)
  Sender: FDA-Public Use
  Company Number: JP-ABBVIE-18S-087-2576111-00

PATIENT
  Age: 67 Year
  Sex: Male

DRUGS (5)
  1. CARBIDOPA\LEVODOPA [Suspect]
     Active Substance: CARBIDOPA\LEVODOPA
     Indication: Parkinson^s disease
     Dosage: MD: 5.5 ML CD: 2.3 ML/HR X 16 HRS ED: 1 ML/UNIT X 1?STRENGTH:20 MG/ML 5 MG/ML
     Route: 050
     Dates: start: 20170316, end: 20170323
  2. CARBIDOPA\LEVODOPA [Suspect]
     Active Substance: CARBIDOPA\LEVODOPA
     Dosage: MD: 5.5 ML CD: 3.2 ML/HR X 16 HRS ED: 1 ML/UNIT X 1
     Route: 050
     Dates: start: 20170323
  3. ROTIGOTINE [Concomitant]
     Active Substance: ROTIGOTINE
     Indication: Parkinson^s disease
     Route: 062
  4. ROPINIROLE HYDROCHLORIDE [Concomitant]
     Active Substance: ROPINIROLE HYDROCHLORIDE
     Indication: Parkinson^s disease
     Route: 048
  5. ZONISAMIDE [Concomitant]
     Active Substance: ZONISAMIDE
     Indication: Parkinson^s disease
     Route: 048

REACTIONS (8)
  - Neoplasm malignant [Recovering/Resolving]
  - Malaise [Unknown]
  - Muscle rigidity [Not Recovered/Not Resolved]
  - Drug ineffective [Unknown]
  - Stoma site discharge [Unknown]
  - Device issue [Unknown]
  - Device connection issue [Unknown]
  - Device dislocation [Unknown]

NARRATIVE: CASE EVENT DATE: 20181124
